FAERS Safety Report 7258527-3 (Version None)
Quarter: 2011Q1

REPORT INFORMATION
  Report Type: 
  Country: None (occurrence: None)
  Receive Date: 20110129
  Receipt Date: 20100525
  Transmission Date: 20110831
  Serious: No
  Sender: FDA-Public Use
  Company Number: US-ABBOTT-10P-163-0647896-00

PATIENT
  Sex: Female
  Weight: 110.32 kg

DRUGS (4)
  1. HUMIRA [Suspect]
     Indication: PSORIATIC ARTHROPATHY
     Dosage: PATIENT INSTRUCTED TO INCREASE TO WEEKLY DOSING STARTING THIS WEEK
     Route: 058
     Dates: end: 20100601
  2. HUMIRA [Suspect]
     Indication: PSORIASIS
     Dates: start: 20100601
  3. MELOXICAM [Concomitant]
     Indication: PRODUCT USED FOR UNKNOWN INDICATION
  4. TYLENOL-500 [Concomitant]
     Indication: PAIN

REACTIONS (3)
  - DRUG INEFFECTIVE [None]
  - MOBILITY DECREASED [None]
  - MYALGIA [None]
